FAERS Safety Report 11999874 (Version 1)
Quarter: 2016Q1

REPORT INFORMATION
  Report Type: Spontaneous
  Country: US (occurrence: None)
  Receive Date: 20160203
  Receipt Date: 20160203
  Transmission Date: 20160526
  Serious: No
  Sender: FDA-Public Use
  Company Number: None

PATIENT

DRUGS (2)
  1. AMIODARONE INJECTION AMIODARONE HYDROCHLORIDE [Suspect]
     Active Substance: AMIODARONE
     Dosage: INJECTABLE  INTRAVENOUS  450MG/9 ML SINGLE USE VIAL  10 X 9 ML
     Route: 042
  2. TRANEXAMIC ACID. [Suspect]
     Active Substance: TRANEXAMIC ACID
     Dosage: INJECTABLE INTRAVENOUS 1000MG/10ML  SINGLE DOSE VIAL 10 X 10 ML
     Route: 042

REACTIONS (4)
  - Intercepted product selection error [None]
  - Circumstance or information capable of leading to medication error [None]
  - Product packaging issue [None]
  - Product label confusion [None]
